FAERS Safety Report 5852695-3 (Version None)
Quarter: 2008Q3

REPORT INFORMATION
  Report Type: 
  Country: None (occurrence: None)
  Receive Date: 20080819
  Receipt Date: 20080808
  Transmission Date: 20090109
  Serious: Yes (Congenital Anomaly)
  Sender: FDA-Public Use
  Company Number: 1000000469

PATIENT
  Sex: Female
  Weight: 3.535 kg

DRUGS (1)
  1. CARBAMAZEPINE [Suspect]
     Indication: PARTIAL SEIZURES
     Dosage: 1000 MG

REACTIONS (2)
  - HAEMANGIOMA CONGENITAL [None]
  - MATERNAL DRUGS AFFECTING FOETUS [None]
